FAERS Safety Report 8299248-8 (Version None)
Quarter: 2012Q2

REPORT INFORMATION
  Report Type: 
  Country: None (occurrence: None)
  Receive Date: 20120419
  Receipt Date: 20120416
  Transmission Date: 20120825
  Serious: No
  Sender: FDA-Public Use
  Company Number: US-PFIZER INC-2012094242

PATIENT
  Sex: Female

DRUGS (1)
  1. PREMARIN [Suspect]
     Dosage: UNK, 1X/DAY
     Route: 067
     Dates: start: 20120401

REACTIONS (4)
  - HEADACHE [None]
  - MALAISE [None]
  - MIGRAINE [None]
  - ABDOMINAL PAIN UPPER [None]
